FAERS Safety Report 10206901 (Version 4)
Quarter: 2014Q4

REPORT INFORMATION
  Report Type: Spontaneous
  Country: US (occurrence: US)
  Receive Date: 20140530
  Receipt Date: 20141030
  Transmission Date: 20150528
  Serious: Yes (Hospitalization)
  Sender: FDA-Public Use
  Company Number: US-BAYER-2014-077313

PATIENT
  Age: 28 Year
  Sex: Female
  Weight: 49.43 kg

DRUGS (1)
  1. MIRENA [Suspect]
     Active Substance: LEVONORGESTREL
     Dosage: 20 MCG/24HR, CONT
     Route: 015
     Dates: start: 20080613, end: 20140424

REACTIONS (10)
  - Device misuse [None]
  - Injury [None]
  - Pregnancy with contraceptive device [None]
  - Device issue [None]
  - Uterine perforation [None]
  - Menorrhagia [None]
  - Drug ineffective [None]
  - Post procedural discomfort [None]
  - Procedural pain [None]
  - Medical device pain [None]

NARRATIVE: CASE EVENT DATE: 201012
